FAERS Safety Report 4568180-5 (Version None)
Quarter: 2005Q1

REPORT INFORMATION
  Report Type: 
  Country: None (occurrence: None)
  Receive Date: 20050131
  Receipt Date: 20050125
  Transmission Date: 20050727
  Serious: No
  Sender: FDA-Public Use
  Company Number: 05H-144-0288105-00

PATIENT

DRUGS (5)
  1. LEUCOVORIN CALCIUM [Suspect]
     Indication: COLORECTAL CANCER
     Dosage: 250 MG/M2, NOT REPORTED, INTRAVENOUS
     Route: 042
  2. OXALIPLATIN [Suspect]
     Indication: COLORECTAL CANCER
     Dosage: 85 MG/M2, NOT REPORTED; INTRAVENOUS
     Route: 042
  3. FOLINIC ACID [Suspect]
     Indication: COLORECTAL CANCER
     Dosage: 7.5 MG, 12 HR, ORAL
     Route: 048
  4. TEGAFUR URACIL [Suspect]
     Indication: COLORECTAL CANCER
     Dosage: 300 MG/M2, NOT REPORTED; ORAL
     Route: 048
  5. 5-HYDROXYTRYPTAMINE-3-RECEPTOR ANTAGONIST [Concomitant]

REACTIONS (1)
  - THROMBOCYTOPENIA [None]
